FAERS Safety Report 13890314 (Version 1)
Quarter: 2017Q3

REPORT INFORMATION
  Report Type: Spontaneous
  Country: US (occurrence: US)
  Receive Date: 20170822
  Receipt Date: 20170822
  Transmission Date: 20171127
  Serious: No
  Sender: FDA-Public Use
  Company Number: US-JNJFOC-20170815803

PATIENT
  Sex: Male
  Weight: 115.21 kg

DRUGS (3)
  1. TAMSULOSIN HYDROCHLORIDE. [Concomitant]
     Active Substance: TAMSULOSIN HYDROCHLORIDE
     Indication: PROSTATIC DISORDER
     Route: 048
     Dates: start: 2016
  2. INVEGA SUSTENNA [Suspect]
     Active Substance: PALIPERIDONE PALMITATE
     Indication: SCHIZOPHRENIA
     Dosage: EVERY 28 DAYS
     Route: 030
     Dates: start: 201703
  3. BENZTROPINE [Concomitant]
     Active Substance: BENZTROPINE
     Indication: EXTRAPYRAMIDAL DISORDER
     Route: 048

REACTIONS (2)
  - Weight increased [Not Recovered/Not Resolved]
  - Prostatic disorder [Unknown]
